FAERS Safety Report 9701365 (Version 1)
Quarter: 2013Q4

REPORT INFORMATION
  Report Type: Spontaneous
  Country: US (occurrence: None)
  Receive Date: 20131120
  Receipt Date: 20131120
  Transmission Date: 20140711
  Serious: Yes (Hospitalization)
  Sender: FDA-Public Use
  Company Number: None

PATIENT
  Age: 12 Year
  Sex: Female
  Weight: 55 kg

DRUGS (6)
  1. PEG-L-ASPARAGINASE (K-H) [Suspect]
  2. CYTARABINE [Suspect]
  3. DAUNORUBICIN [Suspect]
  4. METHOTREXATE [Suspect]
  5. PREDNISONE [Suspect]
  6. VINCRISTINE [Suspect]

REACTIONS (8)
  - Hyponatraemia [None]
  - Dysuria [None]
  - Hypertension [None]
  - Jugular vein thrombosis [None]
  - Pulmonary embolism [None]
  - Axillary vein thrombosis [None]
  - Subclavian vein thrombosis [None]
  - Venous thrombosis [None]
